FAERS Safety Report 5862920-0 (Version None)
Quarter: 2008Q3

REPORT INFORMATION
  Report Type: 
  Country: None (occurrence: None)
  Receive Date: 20080828
  Receipt Date: 20080822
  Transmission Date: 20090109
  Serious: Yes (Death)
  Sender: FDA-Public Use
  Company Number: A0744794A

PATIENT
  Age: 22 Year
  Sex: Female
  Weight: 40 kg

DRUGS (3)
  1. SERETIDE [Suspect]
     Indication: ASTHMA
     Dates: start: 20070301, end: 20080515
  2. RIVOTRIL [Concomitant]
     Dates: start: 20070301, end: 20080501
  3. UNKNOWN MEDICATION [Concomitant]

REACTIONS (1)
  - LUNG NEOPLASM MALIGNANT [None]
